FAERS Safety Report 11389820 (Version 8)
Quarter: 2017Q3

REPORT INFORMATION
  Report Type: Report from Study
  Country: CA (occurrence: CA)
  Receive Date: 20150818
  Receipt Date: 20170720
  Transmission Date: 20171127
  Serious: Yes (Hospitalization, Other)
  Sender: FDA-Public Use
  Company Number: CA-ROCHE-1563498

PATIENT
  Age: 71 Year
  Sex: Female
  Weight: 73.1 kg

DRUGS (19)
  1. ACTEMRA [Suspect]
     Active Substance: TOCILIZUMAB
     Route: 042
     Dates: start: 20141127
  2. ACTEMRA [Suspect]
     Active Substance: TOCILIZUMAB
     Route: 042
     Dates: start: 20150506
  3. PREDNISONE. [Concomitant]
     Active Substance: PREDNISONE
     Route: 065
  4. ELTROXIN [Concomitant]
     Active Substance: LEVOTHYROXINE
  5. ACTEMRA [Suspect]
     Active Substance: TOCILIZUMAB
     Indication: RHEUMATOID ARTHRITIS
     Route: 042
     Dates: start: 20120627, end: 20170420
  6. LASIX [Concomitant]
     Active Substance: FUROSEMIDE
  7. FOLIC ACID. [Concomitant]
     Active Substance: FOLIC ACID
  8. LOSEC [Concomitant]
     Active Substance: OMEPRAZOLE
  9. ACTEMRA [Suspect]
     Active Substance: TOCILIZUMAB
     Route: 042
     Dates: start: 20141002
  10. AMIODARONE [Concomitant]
     Active Substance: AMIODARONE
  11. LIPIDIL EZ [Concomitant]
     Active Substance: FENOFIBRATE
  12. TYLENOL WITH CODEINE [Concomitant]
     Active Substance: ACETAMINOPHEN\CODEINE PHOSPHATE
  13. COUMADIN [Concomitant]
     Active Substance: WARFARIN SODIUM
  14. ACTEMRA [Suspect]
     Active Substance: TOCILIZUMAB
     Route: 042
     Dates: start: 20140213
  15. ACTEMRA [Suspect]
     Active Substance: TOCILIZUMAB
     Route: 042
     Dates: start: 20160504
  16. DIGOXIN. [Concomitant]
     Active Substance: DIGOXIN
  17. TRAZODONE [Concomitant]
     Active Substance: TRAZODONE HYDROCHLORIDE
  18. ACTEMRA [Suspect]
     Active Substance: TOCILIZUMAB
     Route: 042
     Dates: start: 20150813
  19. RAMIPRIL. [Concomitant]
     Active Substance: RAMIPRIL

REACTIONS (8)
  - Blood pressure decreased [Unknown]
  - Arthropathy [Unknown]
  - Drug ineffective [Unknown]
  - Heart rate decreased [Not Recovered/Not Resolved]
  - Weight decreased [Recovering/Resolving]
  - Joint swelling [Unknown]
  - Dyspnoea [Not Recovered/Not Resolved]
  - Cardiac failure congestive [Unknown]

NARRATIVE: CASE EVENT DATE: 20150107
